FAERS Safety Report 15021033 (Version 2)
Quarter: 2018Q2

REPORT INFORMATION
  Report Type: Report from Study
  Country: JP (occurrence: JP)
  Receive Date: 20180618
  Receipt Date: 20180625
  Transmission Date: 20180711
  Serious: Yes (Hospitalization)
  Sender: FDA-Public Use
  Company Number: JP-EISAI MEDICAL RESEARCH-EC-2018-041271

PATIENT
  Age: 67 Year
  Sex: Female
  Weight: 39 kg

DRUGS (19)
  1. LENVATINIB [Suspect]
     Active Substance: LENVATINIB
     Indication: CLEAR CELL RENAL CELL CARCINOMA
     Route: 048
     Dates: start: 20180419, end: 20180428
  2. OXINORM [Concomitant]
  3. ASPARA-CA [Concomitant]
     Active Substance: CALCIUM ASPARTATE
  4. ETODOLAC. [Concomitant]
     Active Substance: ETODOLAC
  5. RANMARK [Concomitant]
     Active Substance: DENOSUMAB
  6. MOHRUS TAPE [Concomitant]
     Active Substance: KETOPROFEN
  7. KERATINAMIN [Concomitant]
     Active Substance: UREA
  8. AZUNOL GARGLE [Concomitant]
  9. ALFACALCIDOL [Concomitant]
     Active Substance: ALFACALCIDOL
  10. LENVATINIB [Suspect]
     Active Substance: LENVATINIB
     Route: 048
     Dates: start: 20180507, end: 20180516
  11. PEMBROLIZUMAB. [Suspect]
     Active Substance: PEMBROLIZUMAB
     Indication: CLEAR CELL RENAL CELL CARCINOMA
     Route: 041
     Dates: start: 20180419, end: 20180531
  12. ZOLPIDEM [Concomitant]
     Active Substance: ZOLPIDEM\ZOLPIDEM TARTRATE
  13. PIOGLITAZONE. [Concomitant]
     Active Substance: PIOGLITAZONE
  14. LENVATINIB [Suspect]
     Active Substance: LENVATINIB
     Route: 048
     Dates: start: 20180524, end: 20180610
  15. AMLODIPINE [Concomitant]
     Active Substance: AMLODIPINE BESYLATE
  16. OXYCONTIN TR [Concomitant]
  17. THYRADIN S [Concomitant]
     Active Substance: LEVOTHYROXINE SODIUM
  18. LAC-B [Concomitant]
     Active Substance: BIFIDOBACTERIUM SPP.
  19. LANSOPRAZOLE. [Concomitant]
     Active Substance: LANSOPRAZOLE

REACTIONS (1)
  - Enterocolitis [Not Recovered/Not Resolved]

NARRATIVE: CASE EVENT DATE: 20180611
